FAERS Safety Report 13792247 (Version 3)
Quarter: 2017Q4

REPORT INFORMATION
  Report Type: Report from Study
  Country: CA (occurrence: CA)
  Receive Date: 20170725
  Receipt Date: 20171204
  Transmission Date: 20180320
  Serious: Yes (Hospitalization)
  Sender: FDA-Public Use
  Company Number: CA-HLSUS-2017-CA-000686

PATIENT
  Age: 62 Year
  Sex: Female
  Weight: 87 kg

DRUGS (6)
  1. CLOZARIL [Suspect]
     Active Substance: CLOZAPINE
     Indication: SCHIZOAFFECTIVE DISORDER
     Dosage: 475MG DAILY
     Route: 048
     Dates: start: 20151023
  2. ROSUVASTATIN. [Concomitant]
     Active Substance: ROSUVASTATIN
     Dosage: 5MG ONCE DAILY
     Route: 048
  3. SERTRALINE [Concomitant]
     Active Substance: SERTRALINE HYDROCHLORIDE
     Dosage: 150MG DAILY
     Route: 048
  4. VALPROIC ACID. [Concomitant]
     Active Substance: VALPROIC ACID
     Indication: SEIZURE
     Dosage: 1MG TWICE A DAY
     Route: 048
  5. ARIPIPRAZOLE. [Concomitant]
     Active Substance: ARIPIPRAZOLE
     Indication: DEPRESSED LEVEL OF CONSCIOUSNESS
     Dosage: 2MG ONCE DAILY
     Route: 048
     Dates: end: 201707
  6. ASA EC [Concomitant]
     Active Substance: ASPIRIN
     Dosage: 81MG OD
     Route: 048

REACTIONS (10)
  - Sedation [Recovering/Resolving]
  - Delirium [Recovered/Resolved]
  - Depressed level of consciousness [Recovered/Resolved with Sequelae]
  - Respiratory acidosis [Unknown]
  - Speech disorder [Unknown]
  - Cough [Unknown]
  - Somnolence [Unknown]
  - Lisfranc fracture [Unknown]
  - Carbon dioxide decreased [Unknown]
  - Asthenia [Unknown]

NARRATIVE: CASE EVENT DATE: 2017
